FAERS Safety Report 9881714 (Version 1)
Quarter: 2014Q1

REPORT INFORMATION
  Report Type: Spontaneous
  Country: US (occurrence: US)
  Receive Date: 20140207
  Receipt Date: 20140207
  Transmission Date: 20141002
  Serious: No
  Sender: FDA-Public Use
  Company Number: US-GILEAD-2012-0051438

PATIENT
  Sex: Male

DRUGS (3)
  1. TRUVADA [Suspect]
     Indication: HIV INFECTION
     Dosage: UNK UNK, QD
  2. NORVIR [Concomitant]
     Indication: HIV INFECTION
     Dosage: UNK
     Dates: end: 201111
  3. PREZISTA                           /05513801/ [Concomitant]
     Indication: HIV INFECTION
     Dosage: UNK
     Dates: end: 201111

REACTIONS (10)
  - Blood iron increased [Unknown]
  - Thyroid function test abnormal [Unknown]
  - Swelling face [Unknown]
  - Hepatic enzyme increased [Unknown]
  - Diarrhoea [Unknown]
  - Fatigue [Unknown]
  - Nausea [Unknown]
  - Abdominal pain [Unknown]
  - Myalgia [Unknown]
  - Asthenia [Unknown]
